FAERS Safety Report 8101771-3 (Version None)
Quarter: 2012Q1

REPORT INFORMATION
  Report Type: 
  Country: None (occurrence: None)
  Receive Date: 20120131
  Receipt Date: 20120119
  Transmission Date: 20120608
  Serious: Yes (Hospitalization, Other)
  Sender: FDA-Public Use
  Company Number: PHFR2011GB007173

PATIENT
  Sex: Male

DRUGS (1)
  1. CLOZARIL [Suspect]
     Indication: SCHIZOPHRENIA
     Route: 048
     Dates: start: 20080722, end: 20111210

REACTIONS (8)
  - SEPSIS [None]
  - WHITE BLOOD CELL COUNT INCREASED [None]
  - HAEMOGLOBIN DECREASED [None]
  - RENAL FAILURE [None]
  - MALAISE [None]
  - MULTI-ORGAN FAILURE [None]
  - LOWER RESPIRATORY TRACT INFECTION [None]
  - CREATININE RENAL CLEARANCE DECREASED [None]
